FAERS Safety Report 9356517 (Version 1)
Quarter: 2013Q2

REPORT INFORMATION
  Report Type: Spontaneous
  Country: CH (occurrence: None)
  Receive Date: 20130614
  Receipt Date: 20130614
  Transmission Date: 20140414
  Serious: Yes (Other)
  Sender: FDA-Public Use
  Company Number: 2013P1007046

PATIENT
  Age: 48 Year
  Sex: Female

DRUGS (5)
  1. LITHIUM [Suspect]
     Indication: BIPOLAR DISORDER
  2. DULOXETINE [Suspect]
     Indication: BIPOLAR DISORDER
  3. SUCCINYLCHOLINE [Suspect]
     Indication: ELECTROCONVULSIVE THERAPY
  4. SUCCINYLCHOLINE [Suspect]
     Indication: HYPOTONIA
  5. ROCUROMIUM [Concomitant]

REACTIONS (1)
  - Ventricular tachycardia [None]
